FAERS Safety Report 7047367-6 (Version None)
Quarter: 2010Q4

REPORT INFORMATION
  Report Type: 
  Country: None (occurrence: None)
  Receive Date: 20101015
  Receipt Date: 20101012
  Transmission Date: 20110411
  Serious: Yes (Death)
  Sender: FDA-Public Use
  Company Number: PHHY2010US68745

PATIENT
  Sex: Male
  Weight: 78.36 kg

DRUGS (1)
  1. EXJADE [Suspect]
     Indication: IRON METABOLISM DISORDER
     Dosage: 1000 MG/DAY
     Route: 048
     Dates: start: 20061103, end: 20100922

REACTIONS (1)
  - DEATH [None]
